FAERS Safety Report 4926885-8 (Version None)
Quarter: 2006Q1

REPORT INFORMATION
  Report Type: 
  Country: None (occurrence: None)
  Receive Date: 20060228
  Receipt Date: 20050712
  Transmission Date: 20060701
  Serious: Yes (Hospitalization)
  Sender: FDA-Public Use
  Company Number: US-GLAXOSMITHKLINE-A0565927A

PATIENT
  Sex: Female

DRUGS (15)
  1. LAMICTAL [Suspect]
     Indication: BIPOLAR DISORDER
     Route: 048
     Dates: start: 20050531
  2. ABILIFY [Concomitant]
  3. CYMBALTA [Concomitant]
  4. FAMOTIDINE [Concomitant]
  5. ASPIRIN [Concomitant]
  6. ISOSORBIDE MONONITRATE [Concomitant]
  7. LASIX [Concomitant]
  8. TOPROL [Concomitant]
  9. LORAZEPAM [Concomitant]
  10. ZYPREXA [Concomitant]
  11. LISINOPRIL [Concomitant]
  12. HALOPERIDOL [Concomitant]
  13. TRAZODONE [Concomitant]
  14. FOLIC ACID [Concomitant]
  15. NITROGLYCERIN [Concomitant]
     Route: 060

REACTIONS (4)
  - ABDOMINAL PAIN [None]
  - HAEMOLYSIS [None]
  - HYPERBILIRUBINAEMIA [None]
  - WHITE BLOOD CELL COUNT INCREASED [None]
